FAERS Safety Report 6414672-3 (Version None)
Quarter: 2009Q4

REPORT INFORMATION
  Report Type: 
  Country: None (occurrence: None)
  Receive Date: 20091021
  Receipt Date: 20090819
  Transmission Date: 20100525
  Serious: Yes (Other)
  Sender: FDA-Public Use
  Company Number: JPI-P-007263

PATIENT
  Age: 46 Year
  Sex: Female
  Weight: 105.6881 kg

DRUGS (15)
  1. XYREM [Suspect]
     Indication: NARCOLEPSY
     Dosage: SEE IMAGE
     Route: 048
     Dates: start: 20090101, end: 20090101
  2. XYREM [Suspect]
     Indication: NARCOLEPSY
     Dosage: SEE IMAGE
     Route: 048
     Dates: start: 20090508
  3. XYREM [Suspect]
     Indication: NARCOLEPSY
     Dosage: SEE IMAGE
     Route: 048
     Dates: start: 20090708
  4. XYREM [Suspect]
     Indication: NARCOLEPSY
     Dosage: SEE IMAGE
     Route: 048
     Dates: start: 20090817
  5. CALCIUM [Concomitant]
  6. MAGNESIUM [Concomitant]
  7. MYCOPHENOLIC ACID [Concomitant]
  8. LEVOTHYROXINE SODIUM [Concomitant]
  9. OMEPRAZOLE [Concomitant]
  10. CELECOXIB [Concomitant]
  11. HYDROXYCHLOROQUINE SULFATE [Concomitant]
  12. PREDNISONE [Concomitant]
  13. LEFLUNOMIDE [Concomitant]
  14. AMPHETAMINE AND DEXTROAMPHETAMINE SALTS [Concomitant]
  15. ALPRAZOLAM [Concomitant]

REACTIONS (8)
  - BIPOLAR DISORDER [None]
  - DYSPEPSIA [None]
  - HYPOMANIA [None]
  - SLEEP DISORDER [None]
  - SOMNOLENCE [None]
  - STREPTOCOCCUS TEST POSITIVE [None]
  - UPPER RESPIRATORY TRACT INFECTION [None]
  - VAGINAL INFECTION [None]
